FAERS Safety Report 21651352 (Version 1)
Quarter: 2022Q4

REPORT INFORMATION
  Report Type: Spontaneous
  Country: US (occurrence: US)
  Receive Date: 20221128
  Receipt Date: 20221128
  Transmission Date: 20230113
  Serious: No
  Sender: FDA-Public Use
  Company Number: US-INCYTE CORPORATION-2022IN011268

PATIENT

DRUGS (1)
  1. JAKAFI [Suspect]
     Active Substance: RUXOLITINIB
     Indication: Myelofibrosis
     Dosage: 5 MILLIGRAM, BID (10MG TAB, HE WAS PRESCRIBED TO TAKE HALF A TABLET TWICE A DAY)
     Route: 048

REACTIONS (2)
  - Product availability issue [Unknown]
  - Wrong technique in product usage process [Unknown]
